FAERS Safety Report 13706171 (Version 2)
Quarter: 2017Q3

REPORT INFORMATION
  Report Type: Report from Study
  Country: CO (occurrence: CO)
  Receive Date: 20170630
  Receipt Date: 20170725
  Transmission Date: 20171127
  Serious: Yes (Hospitalization)
  Sender: FDA-Public Use
  Company Number: PHHY2017CO094092

PATIENT
  Age: 9 Year
  Sex: Female

DRUGS (4)
  1. PENICILLIN [Suspect]
     Active Substance: PENICILLIN
     Indication: PRODUCT USED FOR UNKNOWN INDICATION
     Dosage: UNK
     Route: 065
  2. HYDROXYUREA. [Concomitant]
     Active Substance: HYDROXYUREA
     Indication: PRODUCT USED FOR UNKNOWN INDICATION
     Dosage: UNK
     Route: 065
  3. EXJADE [Suspect]
     Active Substance: DEFERASIROX
     Indication: SICKLE CELL ANAEMIA
     Dosage: 125 MG, TID
     Route: 048
     Dates: start: 20140328
  4. FOLIC ACID. [Concomitant]
     Active Substance: FOLIC ACID
     Indication: PRODUCT USED FOR UNKNOWN INDICATION
     Dosage: UNK
     Route: 065

REACTIONS (12)
  - Pain in extremity [Unknown]
  - Chest pain [Unknown]
  - Malaise [Unknown]
  - Bacterial test positive [Unknown]
  - White blood cell count decreased [Unknown]
  - Pain [Unknown]
  - Weight decreased [Unknown]
  - Pneumonia [Unknown]
  - Immunodeficiency [Unknown]
  - Insomnia [Unknown]
  - Vein discolouration [Unknown]
  - Phlebitis [Unknown]

NARRATIVE: CASE EVENT DATE: 20170716
